FAERS Safety Report 8791575 (Version 1)
Quarter: 2012Q4

REPORT INFORMATION
  Report Type: Spontaneous
  Country: CN (occurrence: None)
  Receive Date: 20120913
  Receipt Date: 20120913
  Transmission Date: 20130627
  Serious: Yes (Other)
  Sender: FDA-Public Use
  Company Number: VAL_00834_2012

PATIENT
  Age: 78 Year
  Sex: Male

DRUGS (2)
  1. LOTENSIN [Suspect]
     Indication: HYPERTENSION
     Route: 048
     Dates: start: 201207
  2. LOTENSIN [Suspect]
     Indication: HYPERTENSION
     Route: 048
     Dates: start: 2010, end: 201207

REACTIONS (5)
  - Product quality issue [None]
  - Drug ineffective [None]
  - Nausea [None]
  - Vomiting [None]
  - Blood pressure inadequately controlled [None]
